FAERS Safety Report 6270621-2 (Version None)
Quarter: 2009Q3

REPORT INFORMATION
  Report Type: 
  Country: None (occurrence: None)
  Receive Date: 20090716
  Receipt Date: 20090714
  Transmission Date: 20100115
  Serious: Yes (Death, Life-Threatening, Other)
  Sender: FDA-Public Use
  Company Number: US-ASTRAZENECA-2003UW06395

PATIENT
  Age: 85 Year
  Sex: Female
  Weight: 53.1 kg

DRUGS (15)
  1. ARIMIDEX [Suspect]
     Indication: BREAST CANCER FEMALE
     Route: 048
     Dates: start: 19981118, end: 20030507
  2. LOPRESSOR [Concomitant]
     Indication: HYPERTENSION
     Route: 048
     Dates: start: 19971101
  3. HYDROCHLOROTHIAZIDE [Concomitant]
     Indication: HYPERTENSION
     Dosage: 50/25 QD
     Route: 048
     Dates: start: 20020524
  4. VITAMIN E [Concomitant]
     Route: 048
     Dates: start: 20020524
  5. VIACTIV [Concomitant]
     Route: 048
     Dates: start: 20020524
  6. MIACALCIN [Concomitant]
     Indication: OSTEOPOROSIS
     Route: 045
     Dates: start: 20021218
  7. DARVOCET-N 100 [Concomitant]
     Indication: BACK PAIN
     Route: 048
     Dates: start: 20020524
  8. PAXIL [Concomitant]
     Indication: DEPRESSION
     Route: 048
     Dates: start: 20020524
  9. LASIX [Concomitant]
     Indication: OEDEMA PERIPHERAL
     Route: 048
     Dates: start: 20030621
  10. OXYCONTIN [Concomitant]
     Indication: SMALL INTESTINAL OBSTRUCTION
     Route: 048
     Dates: start: 20030621
  11. NYSTATIN [Concomitant]
     Indication: ORAL CANDIDIASIS
     Route: 048
     Dates: start: 20031007
  12. GLYCERIN [Concomitant]
     Indication: SMALL INTESTINAL OBSTRUCTION
     Route: 054
     Dates: start: 20031007
  13. PHENERGAN [Concomitant]
     Indication: SMALL INTESTINAL OBSTRUCTION
     Dosage: ORAL AND RECTAL
     Dates: start: 20031007
  14. PERCOCET [Concomitant]
     Indication: SMALL INTESTINAL OBSTRUCTION
     Route: 048
     Dates: start: 20031007
  15. ATIVAN [Concomitant]
     Indication: ANXIETY
     Route: 048
     Dates: start: 20031007

REACTIONS (1)
  - ENDOMETRIAL CANCER [None]
